FAERS Safety Report 6790600-6 (Version None)
Quarter: 2010Q2

REPORT INFORMATION
  Report Type: 
  Country: None (occurrence: None)
  Receive Date: 20100624
  Receipt Date: 20100610
  Transmission Date: 20101027
  Serious: Yes (Hospitalization, Other)
  Sender: FDA-Public Use
  Company Number: PHEH2008US04276

PATIENT
  Sex: Female
  Weight: 68.481 kg

DRUGS (55)
  1. AREDIA [Suspect]
     Dosage: 90MG
  2. ZOMETA [Suspect]
  3. ANTICOAGULANTS [Concomitant]
     Dosage: UNK
  4. BUSPIRONE HCL [Concomitant]
     Dosage: UNK
  5. ZETIA [Concomitant]
     Dosage: UNK
  6. CRESTOR [Concomitant]
     Dosage: UNK
  7. WARFARIN [Concomitant]
     Dosage: 5 MG / DAILY
  8. FOLIC ACID [Concomitant]
     Dosage: 1 MG / DAILY
  9. PEPCID [Concomitant]
     Dosage: 40 MG / DAILY
  10. NASAL SPRAY [Concomitant]
     Dosage: UNK
  11. CLINDAMYCIN [Concomitant]
     Dosage: 300 MG / QID FOR 2 WEEKS
     Route: 048
     Dates: start: 20060303
  12. PERIDEX [Concomitant]
     Dosage: UNK
     Dates: start: 20060303
  13. PENICILLIN NOS [Concomitant]
     Dosage: UNK
  14. METRONIDAZOLE [Concomitant]
     Dosage: UNK
  15. AUGMENTIN '125' [Concomitant]
     Dosage: UNK
     Dates: start: 20050401, end: 20050701
  16. CIPROFLOXACIN [Concomitant]
     Dosage: UNK
  17. COZAAR [Concomitant]
     Dosage: 50 MG / DAILY
  18. BUSPAR [Concomitant]
     Dosage: 15 MG / TWICE DAILY
  19. GLIPIZIDE [Concomitant]
     Dosage: 5 MG / DAILY
  20. LIPITOR [Concomitant]
     Dosage: 40 MG / DAILY
  21. GLUCOSAMINE [Concomitant]
     Dosage: UNK
  22. HERBALS NOS W/MINERALS NOS/VITAMINS NOS [Concomitant]
     Dosage: UNK
  23. COUMADIN [Concomitant]
     Dosage: 5 MG / DAILY
     Dates: end: 20060126
  24. COUMADIN [Concomitant]
     Dosage: 3.75 MG /  DAILY
     Dates: start: 20060126
  25. PREVACID [Concomitant]
     Dosage: 30 MG / DAILY
  26. GLUCOPHAGE [Concomitant]
     Dosage: 500 MG / BID
  27. FLAGYL [Concomitant]
     Dosage: 500 MG / DAILY FOR 10 DAYS
     Dates: start: 20050101
  28. HYDRALAZINE HCL [Concomitant]
     Dosage: 10 MG / DAILY
  29. REGLAN [Concomitant]
     Dosage: 5 MG, TID
  30. ZOLOFT [Concomitant]
     Dosage: 50 MG, QD
     Route: 048
  31. MYSOLINE [Concomitant]
     Dosage: 50 MG, BID
     Route: 048
  32. INSULIN INJECTION [Concomitant]
     Dosage: 8 U, BID
     Route: 058
  33. LIPASE [Concomitant]
  34. LOVENOX [Concomitant]
  35. VITAMIN D [Concomitant]
  36. LANSOPRAZOLE [Concomitant]
  37. PROMETHAZINE [Concomitant]
  38. LOSARTAN [Concomitant]
  39. PANTOPRAZOLE [Concomitant]
  40. OXYCODONE HCL [Concomitant]
  41. MORPHINE [Concomitant]
  42. ELAVIL [Concomitant]
  43. VIOXX [Concomitant]
  44. PANCREASE [Concomitant]
  45. ATIVAN [Concomitant]
  46. DARVOCET-N 100 [Concomitant]
  47. JEVITY [Concomitant]
  48. ZANTAC [Concomitant]
  49. ATENOLOL [Concomitant]
  50. PROZAC [Concomitant]
  51. TYLENOL [Concomitant]
  52. MULTIPLE VITAMIN [Concomitant]
  53. NEURONTIN [Concomitant]
  54. FERROUS SULFATE TAB [Concomitant]
  55. TENORMIN [Concomitant]

REACTIONS (81)
  - ALANINE AMINOTRANSFERASE INCREASED [None]
  - ANHEDONIA [None]
  - ANXIETY [None]
  - APNOEA [None]
  - ASPARTATE AMINOTRANSFERASE INCREASED [None]
  - ASTHENIA [None]
  - BALANCE DISORDER [None]
  - BLOOD GLUCOSE DECREASED [None]
  - BONE CALLUS EXCESSIVE [None]
  - BONE OPERATION [None]
  - BRUXISM [None]
  - CARDIOVASCULAR DISORDER [None]
  - CARPAL TUNNEL SYNDROME [None]
  - CATARACT NUCLEAR [None]
  - CONVULSION [None]
  - COUGH [None]
  - CRANIAL NERVE DISORDER [None]
  - DEBRIDEMENT [None]
  - DENTAL CARIES [None]
  - DEPRESSION [None]
  - DISABILITY [None]
  - DYSKINESIA [None]
  - DYSPHAGIA [None]
  - EAR DISCOMFORT [None]
  - EAR HAEMORRHAGE [None]
  - EMBOLISM [None]
  - EXCORIATION [None]
  - FACIAL PALSY [None]
  - FALL [None]
  - FATIGUE [None]
  - FIBROMYALGIA [None]
  - FRACTURE NONUNION [None]
  - GAIT DISTURBANCE [None]
  - GASTROOESOPHAGEAL REFLUX DISEASE [None]
  - GINGIVITIS [None]
  - GOITRE [None]
  - HIP DEFORMITY [None]
  - INCREASED BRONCHIAL SECRETION [None]
  - INJURY [None]
  - IRON DEFICIENCY ANAEMIA [None]
  - JAW FRACTURE [None]
  - KERATOCONJUNCTIVITIS SICCA [None]
  - LACRIMATION INCREASED [None]
  - LAGOPHTHALMOS [None]
  - MALAISE [None]
  - MUSCLE SPASMS [None]
  - MYALGIA [None]
  - MYOPIA [None]
  - ORAL CAVITY FISTULA [None]
  - OSTEITIS [None]
  - OSTEOMYELITIS [None]
  - OSTEONECROSIS OF JAW [None]
  - OSTEOPENIA [None]
  - OSTEOPOROSIS [None]
  - OTITIS MEDIA [None]
  - PAIN [None]
  - PAIN IN EXTREMITY [None]
  - PAIN IN JAW [None]
  - PATHOLOGICAL FRACTURE [None]
  - PERIODONTAL DISEASE [None]
  - PERIODONTITIS [None]
  - PNEUMONIA ASPIRATION [None]
  - POST PROCEDURAL FISTULA [None]
  - PROTHROMBIN TIME PROLONGED [None]
  - PYREXIA [None]
  - QUADRIPLEGIA [None]
  - RESPIRATORY DISTRESS [None]
  - RESPIRATORY FAILURE [None]
  - RHINORRHOEA [None]
  - SINUS TACHYCARDIA [None]
  - SKIN ULCER [None]
  - SPINAL DISORDER [None]
  - TOOTH EXTRACTION [None]
  - TRACHEAL OPERATION [None]
  - TYPE 2 DIABETES MELLITUS [None]
  - URINARY TRACT INFECTION [None]
  - VAGINAL HAEMORRHAGE [None]
  - VISUAL ACUITY REDUCED [None]
  - VULVOVAGINAL CANDIDIASIS [None]
  - WALKING AID USER [None]
  - WEIGHT DECREASED [None]
